FAERS Safety Report 13175630 (Version 3)
Quarter: 2017Q1

REPORT INFORMATION
  Report Type: Spontaneous
  Country: GB (occurrence: GB)
  Receive Date: 20170201
  Receipt Date: 20170330
  Transmission Date: 20170428
  Serious: No
  Sender: FDA-Public Use
  Company Number: GB-ASTRAZENECA-2016SF34409

PATIENT
  Age: 63 Year
  Sex: Female

DRUGS (12)
  1. DEXAMETHASONE. [Concomitant]
     Active Substance: DEXAMETHASONE
  2. REBOXETINE [Concomitant]
     Active Substance: REBOXETINE
  3. NEFOPAM [Concomitant]
     Active Substance: NEFOPAM
  4. METHADONE [Concomitant]
     Active Substance: METHADONE HYDROCHLORIDE
     Dates: end: 201701
  5. THALIDOMIDE [Concomitant]
     Active Substance: THALIDOMIDE
  6. MOVENTIG [Suspect]
     Active Substance: NALOXEGOL OXALATE
     Indication: CONSTIPATION
     Route: 048
     Dates: start: 20160719, end: 20161119
  7. OXYCODONE [Concomitant]
     Active Substance: OXYCODONE
  8. LANSOPRAZOLE. [Concomitant]
     Active Substance: LANSOPRAZOLE
  9. PREGABALIN. [Concomitant]
     Active Substance: PREGABALIN
  10. CYCLOPHOSPHAMIDE. [Concomitant]
     Active Substance: CYCLOPHOSPHAMIDE
  11. METHADONE HYDROCHLORIDE. [Concomitant]
     Active Substance: METHADONE HYDROCHLORIDE
  12. TRAZODONE [Concomitant]
     Active Substance: TRAZODONE HYDROCHLORIDE

REACTIONS (5)
  - Drug withdrawal syndrome [Recovered/Resolved]
  - Hyperhidrosis [Recovered/Resolved]
  - Constipation [Unknown]
  - Agitation [Recovered/Resolved]
  - Therapy cessation [Unknown]

NARRATIVE: CASE EVENT DATE: 201607
